FAERS Safety Report 12181864 (Version 1)
Quarter: 2016Q1

REPORT INFORMATION
  Report Type: Spontaneous
  Country: SE (occurrence: SE)
  Receive Date: 20160315
  Receipt Date: 20160315
  Transmission Date: 20160526
  Serious: Yes (Death, Other)
  Sender: FDA-Public Use
  Company Number: SE-SA-2016SA049316

PATIENT
  Age: 27 Year
  Sex: Male

DRUGS (6)
  1. FLUOXETINE [Suspect]
     Active Substance: FLUOXETINE HYDROCHLORIDE
     Dosage: START DATE: WHEN PATIENT WAS A TEENAGER
     Route: 065
  2. LYRICA [Suspect]
     Active Substance: PREGABALIN
     Dosage: START DATE: WHEN PATIENT WAS A TEENAGER
     Route: 065
  3. STESOLID [Suspect]
     Active Substance: DIAZEPAM
     Dosage: START DATE: WHEN PATIENT WAS A TEENAGER
     Route: 065
  4. MIRTAZAPINE. [Suspect]
     Active Substance: MIRTAZAPINE
     Dosage: START DATE: WHEN PATIENT WAS A TEENAGER
     Route: 065
  5. ZOLPIDEM TARTRATE. [Suspect]
     Active Substance: ZOLPIDEM TARTRATE
     Dosage: START DATE: WHEN PATIENT WAS A TEENAGER
     Route: 065
  6. LEPHETON [Suspect]
     Active Substance: EPHEDRINE\ETHYLMORPHINE
     Dosage: START DATE: WHEN PATIENT WAS A TEENAGER
     Route: 065

REACTIONS (7)
  - Toxicity to various agents [Fatal]
  - Anxiety disorder [Unknown]
  - Personality change [Unknown]
  - Anxiety [Unknown]
  - Dysarthria [Unknown]
  - Obsessive-compulsive disorder [Unknown]
  - Somnolence [Unknown]

NARRATIVE: CASE EVENT DATE: 201408
